FAERS Safety Report 6269648-6 (Version None)
Quarter: 2009Q3

REPORT INFORMATION
  Report Type: 
  Country: None (occurrence: None)
  Receive Date: 20090714
  Receipt Date: 20090701
  Transmission Date: 20100115
  Serious: Yes (Other)
  Sender: FDA-Public Use
  Company Number: MC200900238

PATIENT
  Age: 54 Year
  Sex: Male
  Weight: 98.4 kg

DRUGS (1)
  1. ANGIOMAX [Suspect]
     Indication: PERCUTANEOUS CORONARY INTERVENTION
     Dosage: 0.75 MG/KG, BOLUS, INTRAVENOUS
     Route: 042
     Dates: start: 20090623, end: 20090623

REACTIONS (2)
  - ARTERIAL THROMBOSIS LIMB [None]
  - POST PROCEDURAL COMPLICATION [None]
